FAERS Safety Report 17689010 (Version 1)
Quarter: 2020Q2

REPORT INFORMATION
  Report Type: Spontaneous
  Country: GB (occurrence: GB)
  Receive Date: 20200421
  Receipt Date: 20200421
  Transmission Date: 20200714
  Serious: No
  Sender: FDA-Public Use
  Company Number: None

PATIENT
  Age: 23 Year
  Sex: Female
  Weight: 68 kg

DRUGS (3)
  1. TERBINAFINE. [Concomitant]
     Active Substance: TERBINAFINE
  2. MILLINETTE 20/75 [Concomitant]
  3. 2% PYRITHIONE ZINC SOAP [Suspect]
     Active Substance: PYRITHIONE ZINC
     Indication: SEBORRHOEIC DERMATITIS
     Dosage: ?          QUANTITY:1 SOAP;?
     Route: 061
     Dates: start: 20200416, end: 20200421

REACTIONS (1)
  - Burning sensation [None]

NARRATIVE: CASE EVENT DATE: 20200421
